FAERS Safety Report 6560708-9 (Version None)
Quarter: 2010Q1

REPORT INFORMATION
  Report Type: 
  Country: None (occurrence: None)
  Receive Date: 20100129
  Receipt Date: 20050228
  Transmission Date: 20100710
  Serious: No
  Sender: FDA-Public Use
  Company Number: US-ALLERGAN-200502654

PATIENT
  Age: 1 Day
  Sex: Male
  Weight: 3.91 kg

DRUGS (1)
  1. BOTOX [Suspect]
     Indication: DRUG EXPOSURE DURING PREGNANCY
     Dates: start: 20030505, end: 20030505

REACTIONS (1)
  - JAUNDICE NEONATAL [None]
